FAERS Safety Report 9051433 (Version 1)
Quarter: 2013Q1

REPORT INFORMATION
  Report Type: Spontaneous
  Country: US (occurrence: US)
  Receive Date: 20130206
  Receipt Date: 20130206
  Transmission Date: 20140127
  Serious: No
  Sender: FDA-Public Use
  Company Number: US-ALLERGAN-1209482US

PATIENT
  Age: 58 Year
  Sex: Female

DRUGS (6)
  1. RESTASIS [Suspect]
     Indication: DRY EYE
     Dosage: 2 GTT, BID
     Route: 047
     Dates: start: 20120524, end: 201207
  2. GENTEAL                            /00445101/ [Concomitant]
     Indication: DRY EYE
     Dosage: UNK UNK, PRN
  3. GENTEAL SEVERE EYE RELIEF LUBRICANT GEL [Concomitant]
     Indication: DRY EYE
     Dosage: UNK, QHS
  4. LORETAB [Concomitant]
     Indication: BACK PAIN
     Dosage: UNK, PRN
  5. MILOXICAM [Concomitant]
     Indication: PRODUCT USED FOR UNKNOWN INDICATION
  6. VITAMINS/MINERAL [Concomitant]
     Indication: PRODUCT USED FOR UNKNOWN INDICATION
     Dosage: UNK

REACTIONS (3)
  - Rhinorrhoea [Recovered/Resolved]
  - Dizziness [Recovered/Resolved]
  - Lacrimation increased [Recovered/Resolved]
